FAERS Safety Report 7967887-7 (Version None)
Quarter: 2011Q4

REPORT INFORMATION
  Report Type: 
  Country: None (occurrence: None)
  Receive Date: 20111209
  Receipt Date: 20111124
  Transmission Date: 20120403
  Serious: Yes (Hospitalization)
  Sender: FDA-Public Use
  Company Number: JP-ROCHE-760995

PATIENT
  Sex: Female
  Weight: 52 kg

DRUGS (6)
  1. ROCEPHIN [Suspect]
     Route: 042
     Dates: start: 20110106, end: 20110119
  2. LEVOTHYROXINE SODIUM [Concomitant]
     Route: 048
  3. MUCODYNE [Concomitant]
     Route: 048
     Dates: start: 20101220, end: 20110130
  4. ROCEPHIN [Suspect]
     Indication: MENINGITIS
     Dosage: ROUTE: INTRAVENOUS (NOS)
     Route: 042
     Dates: start: 20101207, end: 20101223
  5. DESMOPRESSIN ACETATE [Concomitant]
     Dosage: DOSEFORM: UNCERTAINITY
  6. CORTRIL [Concomitant]
     Route: 048

REACTIONS (3)
  - CHOLELITHIASIS [None]
  - CHOLECYSTITIS [None]
  - BILE DUCT STONE [None]
